FAERS Safety Report 7770178-0 (Version None)
Quarter: 2011Q3

REPORT INFORMATION
  Report Type: 
  Country: None (occurrence: None)
  Receive Date: 20110922
  Receipt Date: 20101022
  Transmission Date: 20111222
  Serious: No
  Sender: FDA-Public Use
  Company Number: US-ASTRAZENECA-2010SE50351

PATIENT
  Age: 59 Year
  Sex: Female
  Weight: 49.9 kg

DRUGS (3)
  1. SEROQUEL [Suspect]
     Indication: INSOMNIA
     Route: 048
     Dates: start: 20090101
  2. XANAX [Concomitant]
     Dosage: PRN
  3. SEROQUEL [Suspect]
     Route: 048

REACTIONS (3)
  - ABNORMAL DREAMS [None]
  - WRONG TECHNIQUE IN DRUG USAGE PROCESS [None]
  - SOMNOLENCE [None]
